FAERS Safety Report 4521821-0 (Version None)
Quarter: 2004Q4

REPORT INFORMATION
  Report Type: 
  Country: None (occurrence: None)
  Receive Date: 20041209
  Receipt Date: 20041129
  Transmission Date: 20050328
  Serious: Yes (Other)
  Sender: FDA-Public Use
  Company Number: CA-NOVOPROD-240866

PATIENT

DRUGS (6)
  1. NOVORAPID [Suspect]
     Indication: DIABETES MELLITUS INSULIN-DEPENDENT
     Dates: start: 20041126
  2. NOVOLIN GE NPH [Suspect]
     Indication: ILL-DEFINED DISORDER
     Dates: start: 20041126
  3. NOVOLIN GE TORONTO [Suspect]
     Indication: ILL-DEFINED DISORDER
     Dates: start: 20041129
  4. BENADRYL ^ACHE^ [Concomitant]
     Indication: HYPERSENSITIVITY
  5. ATERAX [Concomitant]
     Indication: HYPERSENSITIVITY
  6. REACTINE [Concomitant]
     Indication: ILL-DEFINED DISORDER

REACTIONS (2)
  - CYANOSIS [None]
  - URTICARIA [None]
